FAERS Safety Report 9005994 (Version 1)
Quarter: 2013Q1

REPORT INFORMATION
  Report Type: Spontaneous
  Country: US (occurrence: US)
  Receive Date: 20130109
  Receipt Date: 20130109
  Transmission Date: 20140127
  Serious: No
  Sender: FDA-Public Use
  Company Number: US-PFIZER INC-2013007863

PATIENT
  Sex: Female

DRUGS (4)
  1. GEODON [Suspect]
     Dosage: 60 MG, UNK
  2. GEODON [Suspect]
     Dosage: 50 MG, UNK (1/2 OF A 20MG CAP AND 2 X 20MG CAPS TO MAKE 50MG DOSE)
  3. GEODON [Suspect]
     Dosage: 40 MG, UNK
  4. GEODON [Suspect]
     Dosage: 30 MG, UNK

REACTIONS (5)
  - Withdrawal syndrome [Unknown]
  - Confusional state [Unknown]
  - Agitation [Unknown]
  - Dizziness [Unknown]
  - Somnolence [Unknown]
